FAERS Safety Report 14173733 (Version 1)
Quarter: 2017Q4

REPORT INFORMATION
  Report Type: Spontaneous
  Country: IN (occurrence: IN)
  Receive Date: 20171109
  Receipt Date: 20171109
  Transmission Date: 20180321
  Serious: Yes (Other)
  Sender: FDA-Public Use
  Company Number: IN-009507513-1711IND000935

PATIENT
  Age: 43 Year
  Sex: Male

DRUGS (3)
  1. JANUMET [Suspect]
     Active Substance: METFORMIN HYDROCHLORIDE\SITAGLIPTIN PHOSPHATE
     Dosage: 50/500 MG TWICE A DAY
     Route: 048
  2. INSULIN [Concomitant]
     Active Substance: INSULIN NOS
  3. GLIMEPIRIDE (+) METFORMIN HYDROCHLORIDE [Concomitant]
     Dosage: 2/500 MG ONCE DAILY

REACTIONS (13)
  - Regurgitation [Recovering/Resolving]
  - Influenza like illness [Recovering/Resolving]
  - Nausea [Recovered/Resolved]
  - Dyspnoea [Recovered/Resolved]
  - Rash generalised [Recovering/Resolving]
  - Nausea [Recovering/Resolving]
  - Dyspnoea [Recovering/Resolving]
  - Diarrhoea [Recovered/Resolved]
  - Pruritus generalised [Recovered/Resolved]
  - Influenza like illness [Recovered/Resolved]
  - Pruritus generalised [Recovering/Resolving]
  - Rash generalised [Recovered/Resolved]
  - Dyspepsia [Recovering/Resolving]
